FAERS Safety Report 20129563 (Version 1)
Quarter: 2021Q4

REPORT INFORMATION
  Report Type: Spontaneous
  Country: CN (occurrence: CN)
  Receive Date: 20211130
  Receipt Date: 20211130
  Transmission Date: 20220304
  Serious: Yes (Other)
  Sender: FDA-Public Use
  Company Number: CN-BAXTER-2021BAX037426

PATIENT
  Age: 49 Year
  Sex: Female
  Weight: 60 kg

DRUGS (9)
  1. CYCLOPHOSPHAMIDE [Suspect]
     Active Substance: CYCLOPHOSPHAMIDE
     Indication: Hodgkin^s disease
     Dosage: 0.9% NS 20ML + CYCLOPHOSPHAMIDE FOR INJECTION 1G
     Route: 042
     Dates: start: 20211111, end: 20211111
  2. SODIUM CHLORIDE [Suspect]
     Active Substance: SODIUM CHLORIDE
     Indication: Medication dilution
     Dosage: 0.9% NS 100ML + SINTILIMAB INJECTION 0.2G
     Route: 041
     Dates: start: 20211110, end: 20211110
  3. SODIUM CHLORIDE [Suspect]
     Active Substance: SODIUM CHLORIDE
     Dosage: 0.9% NS 20ML + CYCLOPHOSPHAMIDE FOR INJECTION 1G
     Route: 042
     Dates: start: 20211111, end: 20211111
  4. SODIUM CHLORIDE [Suspect]
     Active Substance: SODIUM CHLORIDE
     Dosage: 0.9% NS 10ML + VINCRISTINE SULFATE FOR INJECTION 1.8MG
     Route: 042
     Dates: start: 20211111, end: 20211111
  5. SODIUM CHLORIDE [Suspect]
     Active Substance: SODIUM CHLORIDE
     Dosage: 0.9% NS 250ML + ETOPOSIDE INJECTION 0.1G
     Route: 042
     Dates: start: 20211111, end: 20211111
  6. DEXTROSE [Suspect]
     Active Substance: DEXTROSE
     Indication: Medication dilution
     Dosage: 5% GS 80ML + EPIRUBICIN HYDROCHLORIDE FOR INJECTION 80MG
     Route: 041
     Dates: start: 20211111, end: 20211111
  7. EPIRUBICIN HYDROCHLORIDE [Suspect]
     Active Substance: EPIRUBICIN HYDROCHLORIDE
     Indication: Hodgkin^s disease
     Dosage: 5% GS 80ML + EPIRUBICIN HYDROCHLORIDE FOR INJECTION 80MG
     Route: 041
     Dates: start: 20211111, end: 20211111
  8. VINCRISTINE SULFATE [Suspect]
     Active Substance: VINCRISTINE SULFATE
     Indication: Hodgkin^s disease
     Dosage: 0.9% NS 10ML + VINCRISTINE SULFATE FOR INJECTION 1.8MG
     Route: 042
     Dates: start: 20211111, end: 20211111
  9. ETOPOSIDE [Suspect]
     Active Substance: ETOPOSIDE
     Indication: Hodgkin^s disease
     Dosage: 0.9% NS 250ML + ETOPOSIDE INJECTION 0.1G
     Route: 041
     Dates: start: 20211111, end: 20211111

REACTIONS (1)
  - White blood cell count decreased [Recovering/Resolving]

NARRATIVE: CASE EVENT DATE: 20211111
